FAERS Safety Report 4486755-9 (Version None)
Quarter: 2004Q4

REPORT INFORMATION
  Report Type: 
  Country: None (occurrence: None)
  Receive Date: 20041022
  Receipt Date: 20041006
  Transmission Date: 20050328
  Serious: Yes (Death)
  Sender: FDA-Public Use
  Company Number: 2004-BP-09361RO

PATIENT
  Age: 40 Year
  Sex: Male

DRUGS (2)
  1. DIGOXIN [Suspect]
     Dosage: PO
     Route: 048
  2. ANTIDEPRESSANTS (ANTIDEPRESSANTS) [Suspect]

REACTIONS (1)
  - MULTIPLE DRUG OVERDOSE [None]
